FAERS Safety Report 6594103-3 (Version None)
Quarter: 2010Q1

REPORT INFORMATION
  Report Type: 
  Country: None (occurrence: None)
  Receive Date: 20100222
  Receipt Date: 20100218
  Transmission Date: 20100710
  Serious: Yes (Hospitalization)
  Sender: FDA-Public Use
  Company Number: FR-ROCHE-678512

PATIENT
  Sex: Female
  Weight: 45 kg

DRUGS (2)
  1. BEVACIZUMAB [Suspect]
     Dosage: THERAPY PERMANENTLY DISCONTINUED
     Route: 042
     Dates: start: 20091126, end: 20091217
  2. ERLOTINIB [Suspect]
     Route: 048
     Dates: start: 20091126, end: 20100217

REACTIONS (2)
  - HYPERTHERMIA [None]
  - OESOPHAGEAL ULCER [None]
